FAERS Safety Report 8620497-0 (Version None)
Quarter: 2012Q3

REPORT INFORMATION
  Report Type: 
  Country: None (occurrence: None)
  Receive Date: 20120824
  Receipt Date: 20120816
  Transmission Date: 20120928
  Serious: Yes (Hospitalization)
  Sender: FDA-Public Use
  Company Number: JP-BRISTOL-MYERS SQUIBB COMPANY-16863920

PATIENT

DRUGS (2)
  1. ADALAT [Suspect]
  2. HYDREA [Suspect]

REACTIONS (1)
  - HYPONATRAEMIA [None]
